FAERS Safety Report 8549349-1 (Version None)
Quarter: 2012Q2

REPORT INFORMATION
  Report Type: 
  Country: None (occurrence: None)
  Receive Date: 20120416
  Receipt Date: 20110624
  Transmission Date: 20120825
  Serious: Yes (Other)
  Sender: FDA-Public Use
  Company Number: PHHY2011US57734

PATIENT
  Sex: Male

DRUGS (7)
  1. LOSARTAN POTASSIUM [Suspect]
     Dosage: 100 MG, QD
  2. VITAMIN D [Concomitant]
  3. CRESTOR [Concomitant]
  4. CALCIUM CARBONATE [Concomitant]
  5. MULTIVITAMINS (ASCORBIC ACID, ERGOCALCIFEROL, FOLIC ACID, NICOTINAMIDE [Concomitant]
  6. DIOVAN [Suspect]
  7. ACTOS (PIOGLITAZONE, PIOGLITAZONE HYDROCHLORIDE) [Concomitant]

REACTIONS (2)
  - BLOOD PRESSURE INCREASED [None]
  - DRUG INEFFECTIVE [None]
